FAERS Safety Report 4499898-0 (Version None)
Quarter: 2004Q4

REPORT INFORMATION
  Report Type: 
  Country: None (occurrence: None)
  Receive Date: 20041112
  Receipt Date: 20041102
  Transmission Date: 20050328
  Serious: Yes (Death, Hospitalization)
  Sender: FDA-Public Use
  Company Number: US-AMGEN-US097804

PATIENT
  Sex: Male

DRUGS (3)
  1. ENBREL [Suspect]
     Indication: RHEUMATOID ARTHRITIS
     Dates: start: 20020501
  2. METHOTREXATE [Concomitant]
  3. CELEBREX [Concomitant]

REACTIONS (4)
  - AORTIC ANEURYSM [None]
  - AORTIC THROMBOSIS [None]
  - CONDITION AGGRAVATED [None]
  - PNEUMONIA [None]
